FAERS Safety Report 9729876 (Version 1)
Quarter: 2013Q4

REPORT INFORMATION
  Report Type: Report from Study
  Country: DE (occurrence: DE)
  Receive Date: 20131204
  Receipt Date: 20131204
  Transmission Date: 20140711
  Serious: Yes (Death, Other)
  Sender: FDA-Public Use
  Company Number: DE-CELGENEUS-062-21660-13114253

PATIENT
  Sex: Female

DRUGS (3)
  1. ABRAXANE [Suspect]
     Indication: BREAST CANCER METASTATIC
     Dosage: 150 MILLIGRAM/SQ. METER
     Route: 041
     Dates: start: 20130522
  2. ABRAXANE [Suspect]
     Dosage: 150 MILLIGRAM/SQ. METER
     Route: 041
     Dates: start: 20130724
  3. ERIBULIN [Concomitant]
     Indication: PRODUCT USED FOR UNKNOWN INDICATION
     Route: 065
     Dates: start: 20130814

REACTIONS (3)
  - Death [Fatal]
  - Breast cancer metastatic [Unknown]
  - Polyneuropathy [Not Recovered/Not Resolved]
